FAERS Safety Report 6595862-6 (Version None)
Quarter: 2010Q1

REPORT INFORMATION
  Report Type: 
  Country: None (occurrence: None)
  Receive Date: 20100219
  Receipt Date: 20100219
  Transmission Date: 20100710
  Serious: Yes (Other)
  Sender: FDA-Public Use
  Company Number: None

PATIENT
  Sex: Female
  Weight: 63.5036 kg

DRUGS (4)
  1. ARIMIDEX [Suspect]
     Indication: BREAST CANCER
     Dosage: 1 TIME DAILY
     Dates: start: 20091001
  2. ATIVAN [Concomitant]
  3. RESTORIL [Concomitant]
  4. FOSAMAX [Concomitant]

REACTIONS (3)
  - MENOPAUSE [None]
  - NIGHT SWEATS [None]
  - POOR QUALITY SLEEP [None]
